FAERS Safety Report 4362643-3 (Version None)
Quarter: 2004Q2

REPORT INFORMATION
  Report Type: 
  Country: None (occurrence: None)
  Receive Date: 20040524
  Receipt Date: 20020306
  Transmission Date: 20050107
  Serious: Yes (Hospitalization)
  Sender: FDA-Public Use
  Company Number: PHBS2002JP03178

PATIENT
  Age: 35 Year
  Sex: Male

DRUGS (3)
  1. VOLTAREN-XR [Suspect]
     Indication: ARTHRALGIA
     Dosage: 75 MG/DAY
     Route: 048
     Dates: start: 20011223, end: 20020206
  2. SELBEX [Suspect]
     Route: 048
     Dates: start: 20011223, end: 20020206
  3. VOLTAREN [Concomitant]
     Route: 061

REACTIONS (2)
  - DRUG ERUPTION [None]
  - PYREXIA [None]
